FAERS Safety Report 24293364 (Version 1)
Quarter: 2024Q3

REPORT INFORMATION
  Report Type: Spontaneous
  Country: US (occurrence: None)
  Receive Date: 20240906
  Receipt Date: 20240906
  Transmission Date: 20241017
  Serious: No
  Sender: DOMPE FARMACEUTICI
  Company Number: US-FARMAPROD-202401-0032

PATIENT
  Age: 81 Year
  Sex: Male

DRUGS (12)
  1. OXERVATE [Suspect]
     Active Substance: CENEGERMIN-BKBJ
     Indication: Neurotrophic keratopathy
     Route: 047
     Dates: start: 20200916, end: 20201111
  2. OXERVATE [Suspect]
     Active Substance: CENEGERMIN-BKBJ
     Route: 047
     Dates: start: 20231118, end: 20231229
  3. OXERVATE [Suspect]
     Active Substance: CENEGERMIN-BKBJ
  4. OXERVATE [Suspect]
     Active Substance: CENEGERMIN-BKBJ
  5. OXERVATE [Suspect]
     Active Substance: CENEGERMIN-BKBJ
  6. PREDNISOLONE [Concomitant]
     Active Substance: PREDNISOLONE
     Indication: Corneal transplant
     Dosage: 1 DROP, OCULUS DEXTER
     Route: 061
  7. VITAMIN B12 [Concomitant]
     Active Substance: CYANOCOBALAMIN
  8. VITAMIN E [Concomitant]
     Active Substance: .ALPHA.-TOCOPHEROL
     Dosage: UNIT
  9. NATACYN [Concomitant]
     Active Substance: NATAMYCIN
     Dosage: DROPS SUSPENSION
  10. ERYTHROMYCIN [Concomitant]
     Active Substance: ERYTHROMYCIN
     Indication: Neurotrophic keratopathy
     Dosage: OCULUS DEXTER
     Route: 061
  11. DOXYCYCLINE [Concomitant]
     Active Substance: DOXYCYCLINE\DOXYCYCLINE HYCLATE
     Dosage: TWICE DAILY
     Route: 048
  12. VALACYCLOVIR [Concomitant]
     Active Substance: VALACYCLOVIR HYDROCHLORIDE
     Dosage: ONCE DAILY
     Route: 048

REACTIONS (3)
  - Drug ineffective [Recovered/Resolved]
  - Disease progression [Unknown]
  - Persistent corneal epithelial defect [Unknown]

NARRATIVE: CASE EVENT DATE: 20231118
